FAERS Safety Report 5344973-1 (Version None)
Quarter: 2007Q2

REPORT INFORMATION
  Report Type: 
  Country: None (occurrence: None)
  Receive Date: 20070416
  Receipt Date: 20070103
  Transmission Date: 20071010
  Serious: No
  Sender: FDA-Public Use
  Company Number: 2007SP000033

PATIENT
  Age: 78 Year
  Sex: Male
  Weight: 107.0489 kg

DRUGS (12)
  1. LUNESTA [Suspect]
     Indication: INSOMNIA
     Dosage: 2 MG;ORAL
     Route: 048
     Dates: start: 20070102
  2. PROSCAR [Concomitant]
  3. DOXAZOSIN MESYLATE [Concomitant]
  4. ARICEPT [Concomitant]
  5. TAMSULOSIN HCL [Concomitant]
  6. ALEVE [Concomitant]
  7. CELEBREX [Concomitant]
  8. ALPRAZOLAM [Concomitant]
  9. VICODIN [Concomitant]
  10. LEXAPRO [Concomitant]
  11. PEPCID [Concomitant]
  12. FLUTICASONE PROPIONATE [Concomitant]

REACTIONS (1)
  - INSOMNIA [None]
